FAERS Safety Report 4276663-0 (Version None)
Quarter: 2004Q1

REPORT INFORMATION
  Report Type: 
  Country: None (occurrence: None)
  Receive Date: 20040120
  Receipt Date: 20040102
  Transmission Date: 20041129
  Serious: Yes (Hospitalization)
  Sender: FDA-Public Use
  Company Number: 10047135-NA01-1

PATIENT
  Age: 17 Year
  Sex: Male
  Weight: 34 kg

DRUGS (5)
  1. PLASMA-LYTE 56 AND DEXTROSE 5% IN PLASTIC CONTAINER [Suspect]
     Dates: start: 20031103
  2. PERFALGAN [Concomitant]
  3. NUBAIN [Concomitant]
  4. NEORAL [Concomitant]
  5. CELLCEPT [Concomitant]

REACTIONS (1)
  - ANGIONEUROTIC OEDEMA [None]
